FAERS Safety Report 4555009-4 (Version None)
Quarter: 2004Q4

REPORT INFORMATION
  Report Type: 
  Country: None (occurrence: None)
  Receive Date: 20041217
  Receipt Date: 20040826
  Transmission Date: 20050328
  Serious: No
  Sender: FDA-Public Use
  Company Number: 2004-BP-07326BP(0)

PATIENT
  Sex: Female

DRUGS (3)
  1. SPIRIVA [Suspect]
     Indication: BRONCHITIS
     Dosage: 18 MCG (18 MCG), IH
     Dates: start: 20040824
  2. RESCON-MX (MESCOLOR) [Suspect]
     Indication: ANTIHISTAMINE THERAPY
  3. CLARINEX [Concomitant]

REACTIONS (2)
  - FATIGUE [None]
  - HYPERSOMNIA [None]
